FAERS Safety Report 23951638 (Version 1)
Quarter: 2024Q2

REPORT INFORMATION
  Report Type: Spontaneous
  Country: AT (occurrence: AT)
  Receive Date: 20240607
  Receipt Date: 20240607
  Transmission Date: 20240716
  Serious: Yes (Death, Other)
  Sender: FDA-Public Use
  Company Number: AT-JNJFOC-20240614160

PATIENT
  Age: 6 Decade
  Sex: Female

DRUGS (1)
  1. TALVEY [Suspect]
     Active Substance: TALQUETAMAB-TGVS
     Indication: Plasma cell myeloma
     Route: 058
     Dates: start: 202307

REACTIONS (7)
  - Death [Fatal]
  - Cytokine release syndrome [Unknown]
  - Weight decreased [Unknown]
  - Dysgeusia [Unknown]
  - Dry mouth [Unknown]
  - Dysphagia [Unknown]
  - Nail dystrophy [Unknown]
